FAERS Safety Report 18924791 (Version 1)
Quarter: 2021Q1

REPORT INFORMATION
  Report Type: Spontaneous
  Country: JP (occurrence: JP)
  Receive Date: 20210223
  Receipt Date: 20210223
  Transmission Date: 20210420
  Serious: Yes (Disabling, Other)
  Sender: FDA-Public Use
  Company Number: JP-CELLTRION INC.-2021JP000457

PATIENT

DRUGS (3)
  1. TRASTUZUMAB BS FOR I.V. INFUSION [NK] [Suspect]
     Active Substance: TRASTUZUMAB
     Indication: BREAST CANCER
     Dosage: 360 MG, EVERY 3 WEEKS
     Route: 042
     Dates: start: 20201005
  2. TRASTUZUMAB BS FOR I.V. INFUSION [NK] [Suspect]
     Active Substance: TRASTUZUMAB
     Dosage: 270 MG, EVERY 3 WEEKS
     Route: 042
     Dates: end: 20201207
  3. RANMARK [Concomitant]
     Active Substance: DENOSUMAB
     Indication: METASTASES TO BONE
     Dosage: UNK
     Dates: start: 20200929

REACTIONS (3)
  - Overdose [Unknown]
  - Pleural effusion [Unknown]
  - Cardiac failure [Recovered/Resolved]

NARRATIVE: CASE EVENT DATE: 20201221
